FAERS Safety Report 8268652-6 (Version None)
Quarter: 2012Q2

REPORT INFORMATION
  Report Type: 
  Country: None (occurrence: None)
  Receive Date: 20120409
  Receipt Date: 20120329
  Transmission Date: 20120825
  Serious: Yes (Hospitalization, Other)
  Sender: FDA-Public Use
  Company Number: CA-ELI_LILLY_AND_COMPANY-CA201112007689

PATIENT
  Age: 82 Year
  Sex: Female
  Weight: 50 kg

DRUGS (21)
  1. FORTEO [Suspect]
     Dosage: 20 UG, QD
     Route: 058
     Dates: start: 20120107
  2. PLAQUENIL [Concomitant]
     Dosage: 200 MG, BID
  3. VITAMIN D [Concomitant]
     Dosage: 40 DF, UNK
  4. HYDROXYCHLOROQUINE SULFATE [Concomitant]
     Dosage: 200 MG, BID
  5. POTASSIUM CHLORIDE [Concomitant]
     Dosage: 20 MEQ, QD
  6. CALCIFEROL [Concomitant]
     Dosage: 50000 U, WEEKLY (1/W)
  7. FORTEO [Suspect]
     Indication: OSTEOPOROSIS
     Dosage: 20 UG, QD
     Route: 058
     Dates: start: 20110217, end: 20120101
  8. PREDNISONE [Concomitant]
     Dosage: 5 MG, QD
  9. PREDNISONE [Concomitant]
     Dosage: 5 MG, BID
     Dates: start: 20120101
  10. PANTOPRAZOLE [Concomitant]
     Dosage: 40 MG, QD
  11. POTASSIUM [Concomitant]
     Dosage: 20 MEQ, QD
  12. CALCIUM CARBONATE [Concomitant]
  13. VITAMIN D2 [Concomitant]
     Dosage: 50000 IU, WEEKLY (1/W)
  14. FUROSEMIDE [Concomitant]
     Indication: VENOUS INSUFFICIENCY
     Dosage: 20 MG, QD
  15. PANTOLOC                           /01263202/ [Concomitant]
     Dosage: 40 MG, QD
  16. CALCIUM CARBONATE [Concomitant]
     Dosage: 500 MG, BID
  17. ASPIRIN [Concomitant]
     Dosage: 80 MG, QD
  18. PYRIDOXIN [Concomitant]
     Dosage: 50 MG, QD
  19. VITAMIN B6 [Concomitant]
     Dosage: 50 MG, QD
  20. METHOTREXATE [Concomitant]
     Dosage: 20 MG, WEEKLY (1/W)
     Dates: end: 20111027
  21. ACETAMINOPHEN [Concomitant]
     Dosage: 625 MG, PRN

REACTIONS (9)
  - LACUNAR INFARCTION [None]
  - OEDEMA PERIPHERAL [None]
  - PAIN IN EXTREMITY [None]
  - VENOUS INSUFFICIENCY [None]
  - HEMIPLEGIA [None]
  - BLOOD ALBUMIN ABNORMAL [None]
  - DYSARTHRIA [None]
  - MYCOBACTERIAL INFECTION [None]
  - NAIL DISORDER [None]
